FAERS Safety Report 5154524-2 (Version None)
Quarter: 2006Q4

REPORT INFORMATION
  Report Type: 
  Country: None (occurrence: None)
  Receive Date: 20061120
  Receipt Date: 20061114
  Transmission Date: 20070319
  Serious: No
  Sender: FDA-Public Use
  Company Number: US-MERCK-0611USA04702M

PATIENT
  Age: 21 Year
  Sex: Female

DRUGS (4)
  1. DECADRON [Suspect]
     Indication: PROPHYLAXIS OF NAUSEA AND VOMITING
     Route: 048
  2. ONDANSETRON HCL [Concomitant]
     Indication: PROPHYLAXIS OF NAUSEA AND VOMITING
     Route: 065
  3. PROMETHAZINE [Concomitant]
     Route: 048
  4. MEDICINALPRODUCT NOT SPECIFIED BY SENDER [Concomitant]
     Indication: CHEMOTHERAPY
     Route: 065

REACTIONS (7)
  - BACK PAIN [None]
  - CLOSTRIDIUM DIFFICILE COLITIS [None]
  - DRUG EXPOSURE DURING PREGNANCY [None]
  - FEBRILE NEUTROPENIA [None]
  - HEADACHE [None]
  - URINARY TRACT INFECTION [None]
  - WHITE BLOOD CELL COUNT DECREASED [None]
